FAERS Safety Report 14984475 (Version 2)
Quarter: 2018Q3

REPORT INFORMATION
  Report Type: Report from Study
  Country: CL (occurrence: CL)
  Receive Date: 20180607
  Receipt Date: 20180730
  Transmission Date: 20181010
  Serious: Yes (Death, Hospitalization, Other)
  Sender: FDA-Public Use
  Company Number: CL-JNJFOC-20180540584

PATIENT
  Age: 57 Year
  Sex: Female

DRUGS (2)
  1. IMBRUVICA [Suspect]
     Active Substance: IBRUTINIB
     Indication: CHRONIC LYMPHOCYTIC LEUKAEMIA
     Route: 048
  2. IMBRUVICA [Suspect]
     Active Substance: IBRUTINIB
     Indication: CHRONIC LYMPHOCYTIC LEUKAEMIA
     Route: 048
     Dates: start: 20180117, end: 201805

REACTIONS (4)
  - Death [Fatal]
  - Platelet count decreased [Unknown]
  - Febrile neutropenia [Unknown]
  - Cough [Unknown]

NARRATIVE: CASE EVENT DATE: 20180524
